FAERS Safety Report 12124725 (Version 8)
Quarter: 2017Q3

REPORT INFORMATION
  Report Type: Spontaneous
  Country: US (occurrence: US)
  Receive Date: 20160229
  Receipt Date: 20170717
  Transmission Date: 20171127
  Serious: Yes (Other)
  Sender: FDA-Public Use
  Company Number: US-PURDUE-USA-2016-0129277

PATIENT
  Age: 15 Year
  Sex: Female

DRUGS (3)
  1. HEROIN [Suspect]
     Active Substance: DIAMORPHINE
     Indication: PRODUCT USED FOR UNKNOWN INDICATION
     Route: 065
  2. OXYCODONE HCL CR TABLETS (SIMILAR TO NDA 22-272) [Suspect]
     Active Substance: OXYCODONE HYDROCHLORIDE
     Indication: DRUG USE DISORDER
     Route: 042
  3. OXYCONTIN [Suspect]
     Active Substance: OXYCODONE HYDROCHLORIDE
     Indication: DRUG USE DISORDER
     Route: 048

REACTIONS (9)
  - Euphoric mood [Unknown]
  - Feeling hot [Unknown]
  - Tremor [Unknown]
  - Substance dependence [Recovering/Resolving]
  - Malaise [Unknown]
  - Drug tolerance increased [Unknown]
  - Feeling of despair [Unknown]
  - Drug withdrawal syndrome [Unknown]
  - Drug abuse [Recovering/Resolving]
